FAERS Safety Report 18554545 (Version 1)
Quarter: 2020Q4

REPORT INFORMATION
  Report Type: Spontaneous
  Country: IR (occurrence: IR)
  Receive Date: 20201127
  Receipt Date: 20201127
  Transmission Date: 20210114
  Serious: Yes (Death, Hospitalization, Other)
  Sender: FDA-Public Use
  Company Number: IR-SA-2020SA341611

PATIENT

DRUGS (4)
  1. COLCHICINE. [Suspect]
     Active Substance: COLCHICINE
     Indication: GOUT
     Dosage: 20 DF, TOTAL
  2. LEVOTHYROXINE. [Concomitant]
     Active Substance: LEVOTHYROXINE
     Indication: HYPOTHYROIDISM
  3. FEXOFENADINE [Suspect]
     Active Substance: FEXOFENADINE HYDROCHLORIDE
     Dosage: 40 DF, TOTAL
  4. CHLOROQUINE. [Suspect]
     Active Substance: CHLOROQUINE
     Indication: SUICIDE ATTEMPT
     Dosage: 20 DF, TOTAL

REACTIONS (27)
  - Abdominal pain upper [Unknown]
  - Respiratory acidosis [Unknown]
  - Blood creatinine increased [Unknown]
  - Vomiting [Unknown]
  - Radial pulse abnormal [Unknown]
  - Platelet count decreased [Unknown]
  - Diarrhoea [Unknown]
  - Toxicity to various agents [Unknown]
  - Bundle branch block right [Fatal]
  - Suicide attempt [Fatal]
  - Pain [Unknown]
  - Aspartate aminotransferase increased [Unknown]
  - Blindness [Unknown]
  - Blood potassium increased [Unknown]
  - Burning sensation [Unknown]
  - Blood sodium decreased [Unknown]
  - Blood alkaline phosphatase increased [Unknown]
  - Cardiac arrest [Fatal]
  - Bundle branch block left [Fatal]
  - Blood pressure decreased [Unknown]
  - Blood glucose decreased [Unknown]
  - Oxygen saturation decreased [Unknown]
  - Activated partial thromboplastin time prolonged [Unknown]
  - International normalised ratio increased [Unknown]
  - Nausea [Unknown]
  - Headache [Unknown]
  - Intentional overdose [Fatal]

NARRATIVE: CASE EVENT DATE: 201901
